FAERS Safety Report 18083502 (Version 1)
Quarter: 2020Q3

REPORT INFORMATION
  Report Type: Spontaneous
  Country: US (occurrence: US)
  Receive Date: 20200729
  Receipt Date: 20200729
  Transmission Date: 20201103
  Serious: No
  Sender: FDA-Public Use
  Company Number: NVSC2020US208813

PATIENT
  Sex: Female

DRUGS (1)
  1. TASIGNA [Suspect]
     Active Substance: NILOTINIB
     Indication: CHRONIC MYELOID LEUKAEMIA
     Dosage: 400 MG, OTHER (TAKE 2 CAPSULE BY MOUTH EVERY 12 HOURS, IN AN EMPTY STOMACH)
     Route: 048
     Dates: start: 201608

REACTIONS (4)
  - Fatigue [Unknown]
  - Alopecia [Unknown]
  - Bone pain [Unknown]
  - Contusion [Unknown]
